FAERS Safety Report 9881648 (Version 1)
Quarter: 2014Q1

REPORT INFORMATION
  Report Type: Spontaneous
  Country: KW (occurrence: KW)
  Receive Date: 20140207
  Receipt Date: 20140207
  Transmission Date: 20141002
  Serious: Yes (Other)
  Sender: FDA-Public Use
  Company Number: KW-JNJFOC-20140201205

PATIENT
  Age: 32 Year
  Sex: Female
  Weight: 81 kg

DRUGS (10)
  1. REMICADE [Suspect]
     Indication: UVEITIS
     Route: 042
     Dates: end: 20131126
  2. REMICADE [Suspect]
     Indication: UVEITIS
     Route: 042
     Dates: start: 20131118
  3. REMICADE [Suspect]
     Indication: UVEITIS
     Route: 042
     Dates: start: 20130907
  4. REMICADE [Suspect]
     Indication: BEHCET^S SYNDROME
     Route: 042
     Dates: end: 20131126
  5. REMICADE [Suspect]
     Indication: BEHCET^S SYNDROME
     Route: 042
     Dates: start: 20130907
  6. REMICADE [Suspect]
     Indication: BEHCET^S SYNDROME
     Route: 042
     Dates: start: 20131118
  7. CORTICOSTEROIDS [Concomitant]
     Indication: PREMEDICATION
     Route: 065
     Dates: start: 20131120, end: 20131122
  8. LYRICA [Concomitant]
     Route: 065
  9. FOLIC ACID [Concomitant]
     Route: 065
  10. CALCIUM [Concomitant]
     Route: 065

REACTIONS (2)
  - Depression [Recovering/Resolving]
  - Off label use [Unknown]
